FAERS Safety Report 16651275 (Version 1)
Quarter: 2019Q3

REPORT INFORMATION
  Report Type: Spontaneous
  Country: VN (occurrence: VN)
  Receive Date: 20190731
  Receipt Date: 20190731
  Transmission Date: 20191004
  Serious: Yes (Life-Threatening, Hospitalization, Other)
  Sender: FDA-Public Use
  Company Number: VN-SA-2019SA202520

PATIENT
  Age: 48 Year
  Sex: Male

DRUGS (10)
  1. PYRAZINAMIDE. [Concomitant]
     Active Substance: PYRAZINAMIDE
     Indication: TUBERCULOSIS
     Dosage: 1500 MG
  2. HYDROCORTISONE. [Suspect]
     Active Substance: HYDROCORTISONE
     Indication: ACUTE RESPIRATORY DISTRESS SYNDROME
     Dosage: 100 MG, Q8H (LONG-TERM USE OF CORTICOSTEROIDS)
  3. HEPARIN [Concomitant]
     Active Substance: HEPARIN SODIUM
     Indication: THROMBOSIS
     Dosage: 100 IU/KG OF DOSE OF IV BOLUS DOSE WAS GIVEN WHEN CANNULAS INSERTIONS WERE FINISHED, THEN 10 IU/KG/H
     Route: 040
  4. LEVOFLOXACIN. [Concomitant]
     Active Substance: LEVOFLOXACIN
     Indication: ACUTE RESPIRATORY DISTRESS SYNDROME
     Dosage: 750 MG FOR FIRST THREE DAYS
  5. MEROPENEM. [Concomitant]
     Active Substance: MEROPENEM
     Indication: ACUTE RESPIRATORY DISTRESS SYNDROME
     Dosage: 1000 MG
  6. AMIKACIN. [Concomitant]
     Active Substance: AMIKACIN
     Indication: ACUTE RESPIRATORY DISTRESS SYNDROME
     Dosage: 1000 MG
  7. CEFTRIAXONE. [Concomitant]
     Active Substance: CEFTRIAXONE
     Indication: PNEUMONIA BACTERIAL
     Dosage: 2 G, QD
  8. RIFAMPICIN AND ISONIAZID [Concomitant]
     Indication: TUBERCULOSIS
     Dosage: 600 MG/400 MG
  9. AMOXICILLIN. [Concomitant]
     Active Substance: AMOXICILLIN
     Dosage: 2 G, QD
  10. ETHAMBUTOL [Concomitant]
     Active Substance: ETHAMBUTOL HYDROCHLORIDE
     Indication: TUBERCULOSIS
     Dosage: 1600 MG

REACTIONS (2)
  - Myopathy [Unknown]
  - Respiratory muscle weakness [Unknown]
